FAERS Safety Report 8206292-5 (Version None)
Quarter: 2012Q1

REPORT INFORMATION
  Report Type: 
  Country: None (occurrence: None)
  Receive Date: 20120313
  Receipt Date: 20120305
  Transmission Date: 20120608
  Serious: Yes (Hospitalization)
  Sender: FDA-Public Use
  Company Number: PHHY2012AU019057

PATIENT
  Sex: Female

DRUGS (1)
  1. CLOZARIL [Suspect]
     Dosage: 250 MG, UNK
     Dates: start: 20110525

REACTIONS (6)
  - BLOOD GLUCOSE INCREASED [None]
  - URINARY TRACT INFECTION [None]
  - DYSPNOEA [None]
  - HEART RATE INCREASED [None]
  - UPPER RESPIRATORY TRACT INFECTION [None]
  - OXYGEN SATURATION DECREASED [None]
